FAERS Safety Report 8943491 (Version 2)
Quarter: 2012Q4

REPORT INFORMATION
  Report Type: 
  Country: DE (occurrence: PL)
  Receive Date: 20121203
  Receipt Date: 20121218
  Transmission Date: 20130627
  Serious: Yes (Other)
  Sender: FDA-Public Use
  Company Number: PHHY2012PL108589

PATIENT
  Age: 25 Year
  Sex: Female

DRUGS (2)
  1. BROMERGON [Suspect]
     Dosage: 2.5 mg, TID
  2. BROMERGON [Suspect]
     Dosage: 3.75 mg, daily

REACTIONS (10)
  - Neurological decompensation [Recovered/Resolved]
  - Visual field defect [Recovered/Resolved]
  - Adenoma benign [Unknown]
  - Haematoma [Unknown]
  - Visual acuity reduced [Recovered/Resolved]
  - Normal newborn [Unknown]
  - Maternal exposure during pregnancy [Unknown]
  - General physical health deterioration [Unknown]
  - Headache [Unknown]
  - Dizziness [Unknown]
